FAERS Safety Report 10218846 (Version 2)
Quarter: 2014Q3

REPORT INFORMATION
  Report Type: Spontaneous
  Country: US (occurrence: US)
  Receive Date: 20140605
  Receipt Date: 20140815
  Transmission Date: 20150326
  Serious: Yes (Death, Life-Threatening, Hospitalization, Other)
  Sender: FDA-Public Use
  Company Number: US-009507513-1406USA002169

PATIENT
  Sex: Female
  Weight: 86.62 kg

DRUGS (1)
  1. JANUVIA [Suspect]
     Active Substance: SITAGLIPTIN PHOSPHATE
     Indication: TYPE 2 DIABETES MELLITUS
     Dosage: 50 MG, QD
     Route: 048
     Dates: start: 20070125, end: 20070331

REACTIONS (22)
  - Sjogren^s syndrome [Unknown]
  - Ascites [Unknown]
  - Gastric bypass [Unknown]
  - Gastric bypass [Unknown]
  - Systemic lupus erythematosus [Unknown]
  - Carotid artery aneurysm [Unknown]
  - Open angle glaucoma [Unknown]
  - Lipoma [Unknown]
  - Pancreatitis [Unknown]
  - Surgery [Unknown]
  - Pancreatic carcinoma [Unknown]
  - Death [Fatal]
  - Chronic obstructive pulmonary disease [Not Recovered/Not Resolved]
  - Gastric fistula [Unknown]
  - Nephropathy [Unknown]
  - Pruritus [Unknown]
  - Knee operation [Unknown]
  - Renal cyst [Unknown]
  - Constipation [Unknown]
  - Metastases to liver [Unknown]
  - Hyperlipidaemia [Unknown]
  - Diabetic neuropathy [Unknown]

NARRATIVE: CASE EVENT DATE: 20070320
